FAERS Safety Report 10230502 (Version 1)
Quarter: 2014Q2

REPORT INFORMATION
  Report Type: Spontaneous
  Country: US (occurrence: US)
  Receive Date: 20140611
  Receipt Date: 20140611
  Transmission Date: 20141212
  Serious: No
  Sender: FDA-Public Use
  Company Number: US-INCYTE CORPORATION-2014IN001082

PATIENT
  Age: 90 Year
  Sex: Female
  Weight: 62 kg

DRUGS (4)
  1. JAKAFI [Suspect]
     Indication: POLYCYTHAEMIA VERA
     Dosage: 20 MG, BID
     Route: 048
     Dates: start: 20131110
  2. JAKAFI [Suspect]
     Dosage: 20 MG, QD
     Route: 048
  3. OMEGA 3                            /01334101/ [Concomitant]
  4. VITAMIN D                          /00107901/ [Concomitant]

REACTIONS (2)
  - Rash [Unknown]
  - Anaemia [Unknown]
